FAERS Safety Report 7077182-9 (Version None)
Quarter: 2010Q4

REPORT INFORMATION
  Report Type: 
  Country: None (occurrence: None)
  Receive Date: 20101101
  Receipt Date: 20101025
  Transmission Date: 20110411
  Serious: Yes (Hospitalization)
  Sender: FDA-Public Use
  Company Number: B0681511A

PATIENT
  Age: 72 Year
  Sex: Female

DRUGS (2)
  1. CLINDAMYCIN [Suspect]
     Route: 065
  2. DICLOFENAC SODIUM [Suspect]
     Route: 065

REACTIONS (14)
  - AGRANULOCYTOSIS [None]
  - ASTHENIA [None]
  - BODY TEMPERATURE INCREASED [None]
  - COUGH [None]
  - DECREASED APPETITE [None]
  - FATIGUE [None]
  - LEUKOPENIA [None]
  - LUNG INFECTION [None]
  - NEUTROPENIA [None]
  - NORMOCHROMIC NORMOCYTIC ANAEMIA [None]
  - ODYNOPHAGIA [None]
  - PYREXIA [None]
  - RALES [None]
  - RHINITIS [None]
